FAERS Safety Report 6357446-4 (Version None)
Quarter: 2009Q3

REPORT INFORMATION
  Report Type: 
  Country: None (occurrence: None)
  Receive Date: 20090916
  Receipt Date: 20090907
  Transmission Date: 20100115
  Serious: Yes (Death, Life-Threatening)
  Sender: FDA-Public Use
  Company Number: JP-JNJFOC-20090904534

PATIENT
  Age: 85 Year
  Sex: Male

DRUGS (9)
  1. LEVOFLOXACIN [Suspect]
     Route: 048
     Dates: start: 20090617, end: 20090820
  2. LEVOFLOXACIN [Suspect]
     Indication: PROSTATITIS
     Route: 048
     Dates: start: 20090617, end: 20090820
  3. ITRIZOLE [Suspect]
     Indication: BRONCHOPULMONARY ASPERGILLOSIS
     Dosage: 400 MG, 200 MG
     Route: 042
     Dates: start: 20090821, end: 20090823
  4. EPHEDRA TEAS [Suspect]
     Indication: COUGH
     Dosage: AS NECESSARY
     Route: 048
     Dates: start: 20090601
  5. SHOUSEIRYUUTOU [Suspect]
     Indication: DRUG USE FOR UNKNOWN INDICATION
     Route: 065
  6. CEFMETAZON [Concomitant]
     Indication: PNEUMONIA
     Route: 042
     Dates: start: 20090820, end: 20090821
  7. PELEX [Concomitant]
     Indication: COUGH
     Route: 048
     Dates: start: 20090601
  8. CODEINE SULFATE [Concomitant]
     Indication: COUGH
     Route: 048
     Dates: start: 20090601
  9. GASTROINTESTINAL AGENT [Concomitant]
     Indication: PROPHYLAXIS
     Route: 048
     Dates: start: 20090601

REACTIONS (4)
  - BACK PAIN [None]
  - DEATH [None]
  - INTERSTITIAL LUNG DISEASE [None]
  - RESPIRATORY FAILURE [None]
